FAERS Safety Report 11897571 (Version 1)
Quarter: 2016Q1

REPORT INFORMATION
  Report Type: Spontaneous
  Country: US (occurrence: US)
  Receive Date: 20160108
  Receipt Date: 20160108
  Transmission Date: 20160526
  Serious: Yes (Other)
  Sender: FDA-Public Use
  Company Number: US-BEH-2015057402

PATIENT
  Sex: Female
  Weight: 92 kg

DRUGS (39)
  1. PREDNISONE. [Concomitant]
     Active Substance: PREDNISONE
  2. ACETAMINOPHEN. [Concomitant]
     Active Substance: ACETAMINOPHEN
  3. MIRALAX [Concomitant]
     Active Substance: POLYETHYLENE GLYCOL 3350
  4. SPIRIVA [Concomitant]
     Active Substance: TIOTROPIUM BROMIDE MONOHYDRATE
  5. PROAIR HFA [Concomitant]
     Active Substance: ALBUTEROL SULFATE
  6. POTASSIUM [Concomitant]
     Active Substance: POTASSIUM
  7. PRIVIGEN [Suspect]
     Active Substance: HUMAN IMMUNOGLOBULIN G
     Indication: HYPOGAMMAGLOBULINAEMIA
     Route: 042
  8. DIAZEPAM. [Concomitant]
     Active Substance: DIAZEPAM
  9. CHLORTHALIDONE. [Concomitant]
     Active Substance: CHLORTHALIDONE
  10. MYCOPHENOLATE [Concomitant]
     Active Substance: MYCOPHENOLIC ACID
  11. PROMETHAZINE [Concomitant]
     Active Substance: PROMETHAZINE\PROMETHAZINE HYDROCHLORIDE
  12. FOLIC ACID. [Concomitant]
     Active Substance: FOLIC ACID
  13. IBUPROFEN. [Concomitant]
     Active Substance: IBUPROFEN
  14. LEVOXYL [Concomitant]
     Active Substance: LEVOTHYROXINE SODIUM
  15. KEFLEX [Concomitant]
     Active Substance: CEPHALEXIN
  16. VITAMIN B [Concomitant]
     Active Substance: VITAMIN B
  17. DIPHENHYDRAMINE. [Concomitant]
     Active Substance: DIPHENHYDRAMINE
  18. EPIPEN [Concomitant]
     Active Substance: EPINEPHRINE
  19. MORPHINE [Concomitant]
     Active Substance: MORPHINE
  20. MAGNESIUM [Concomitant]
     Active Substance: MAGNESIUM
  21. PRIVIGEN [Suspect]
     Active Substance: HUMAN IMMUNOGLOBULIN G
     Indication: MULTIPLE SCLEROSIS
     Route: 042
  22. DICYCLOMINE [Concomitant]
     Active Substance: DICYCLOMINE HYDROCHLORIDE
  23. LOSARTAN. [Concomitant]
     Active Substance: LOSARTAN
  24. PLAQUENIL [Concomitant]
     Active Substance: HYDROXYCHLOROQUINE SULFATE
  25. NITROSTAT [Concomitant]
     Active Substance: NITROGLYCERIN
  26. VITAMIN D [Concomitant]
     Active Substance: CHOLECALCIFEROL
  27. SALGEN [Concomitant]
  28. METOPROLOL. [Concomitant]
     Active Substance: METOPROLOL
  29. SODIUM CHLORIDE. [Concomitant]
     Active Substance: SODIUM CHLORIDE
  30. LANTUS [Concomitant]
     Active Substance: INSULIN GLARGINE
  31. TRAZODONE [Concomitant]
     Active Substance: TRAZODONE HYDROCHLORIDE
  32. ADVAIR HFA [Concomitant]
     Active Substance: FLUTICASONE PROPIONATE\SALMETEROL XINAFOATE
  33. PRILOSEC [Concomitant]
     Active Substance: OMEPRAZOLE MAGNESIUM
  34. PRIVIGEN [Suspect]
     Active Substance: HUMAN IMMUNOGLOBULIN G
     Indication: SYSTEMIC LUPUS ERYTHEMATOSUS
     Route: 042
     Dates: start: 20111121
  35. LYRICA [Concomitant]
     Active Substance: PREGABALIN
  36. HUMALOG [Concomitant]
     Active Substance: INSULIN LISPRO
  37. ISOSORBIDE. [Concomitant]
     Active Substance: ISOSORBIDE
  38. FLEXERIL [Concomitant]
     Active Substance: CYCLOBENZAPRINE HYDROCHLORIDE
  39. CALCIUM [Concomitant]
     Active Substance: CALCIUM

REACTIONS (1)
  - Cellulitis [Unknown]
